FAERS Safety Report 14133578 (Version 1)
Quarter: 2017Q4

REPORT INFORMATION
  Report Type: Report from Study
  Country: None (occurrence: US)
  Receive Date: 20171027
  Receipt Date: 20171027
  Transmission Date: 20180321
  Serious: Yes (Hospitalization)
  Sender: FDA-Public Use
  Company Number: US-ABBVIE-17K-163-2057326-00

PATIENT
  Age: 25 Year
  Sex: Female

DRUGS (3)
  1. HUMIRA [Suspect]
     Active Substance: ADALIMUMAB
     Dosage: DAY 28
     Route: 058
     Dates: start: 20170821, end: 20170831
  2. HUMIRA [Suspect]
     Active Substance: ADALIMUMAB
     Dosage: DAY 8
     Route: 058
     Dates: start: 20170808, end: 20170808
  3. HUMIRA [Suspect]
     Active Substance: ADALIMUMAB
     Indication: COLITIS ULCERATIVE
     Dosage: DAY 1
     Route: 058
     Dates: start: 20170725, end: 20170725

REACTIONS (14)
  - Weight decreased [Not Recovered/Not Resolved]
  - Dysphagia [Recovering/Resolving]
  - Rectal haemorrhage [Recovering/Resolving]
  - Injection site bruising [Unknown]
  - Anxiety [Recovered/Resolved]
  - Headache [Not Recovered/Not Resolved]
  - Constipation [Not Recovered/Not Resolved]
  - Decreased appetite [Not Recovered/Not Resolved]
  - Cough [Recovering/Resolving]
  - Abdominal pain [Recovering/Resolving]
  - Haemorrhage [Unknown]
  - Injection site reaction [Unknown]
  - Loss of personal independence in daily activities [Unknown]
  - Diarrhoea [Not Recovered/Not Resolved]

NARRATIVE: CASE EVENT DATE: 2017
